FAERS Safety Report 9092471 (Version 1)
Quarter: 2013Q1

REPORT INFORMATION
  Report Type: Report from Study
  Country: US (occurrence: US)
  Receive Date: 20130218
  Receipt Date: 20130218
  Transmission Date: 20140127
  Serious: No
  Sender: FDA-Public Use
  Company Number: US-ABBOTT-12P-163-0998554-00

PATIENT
  Sex: Female

DRUGS (1)
  1. SIMCOR 500MG/40MG [Suspect]
     Indication: LOW DENSITY LIPOPROTEIN INCREASED
     Dosage: 500/ 40 MG AT BEDTIME
     Route: 048
     Dates: start: 20120905

REACTIONS (1)
  - Local swelling [Not Recovered/Not Resolved]
